FAERS Safety Report 10045256 (Version 2)
Quarter: 2014Q2

REPORT INFORMATION
  Report Type: Spontaneous
  Country: US (occurrence: US)
  Receive Date: 20140328
  Receipt Date: 20140506
  Transmission Date: 20141212
  Serious: Yes (Death, Hospitalization, Other)
  Sender: FDA-Public Use
  Company Number: US-OTSUKA-US-2014-10600

PATIENT
  Sex: 0

DRUGS (1)
  1. ABILIFY MAINTENA [Suspect]
     Indication: SCHIZOPHRENIA
     Dosage: 400 MG MILLIGRAM(S), QM
     Route: 030
     Dates: start: 20131107, end: 20140306

REACTIONS (4)
  - Upper respiratory tract infection [Unknown]
  - Pneumonia [Fatal]
  - Thrombosis [Unknown]
  - Infection [Unknown]
